FAERS Safety Report 8904607 (Version 6)
Quarter: 2016Q3

REPORT INFORMATION
  Report Type: Spontaneous
  Country: US (occurrence: US)
  Receive Date: 20121112
  Receipt Date: 20160729
  Transmission Date: 20161109
  Serious: Yes (Hospitalization, Disabling, Other)
  Sender: FDA-Public Use
  Company Number: US-009507513-1211USA004397

PATIENT
  Sex: Female
  Weight: 78.46 kg

DRUGS (6)
  1. FOSAMAX [Suspect]
     Active Substance: ALENDRONATE SODIUM
     Indication: OSTEOPENIA
  2. FOSAMAX [Suspect]
     Active Substance: ALENDRONATE SODIUM
     Indication: OSTEOPOROSIS
     Dosage: 70 MG, QW
     Route: 048
     Dates: start: 2003, end: 2010
  3. FOSAMAX PLUS D [Suspect]
     Active Substance: ALENDRONATE SODIUM\CHOLECALCIFEROL
     Indication: OSTEOPENIA
  4. ALENDRONATE SODIUM. [Suspect]
     Active Substance: ALENDRONATE SODIUM
     Indication: OSTEOPOROSIS
     Dosage: 70 MG, UNKNOWN
     Route: 048
  5. CALCIUM (UNSPECIFIED) [Concomitant]
     Active Substance: CALCIUM
     Indication: ROUTINE HEALTH MAINTENANCE
     Dosage: 600 MG, QD
     Dates: start: 1982
  6. FOSAMAX PLUS D [Suspect]
     Active Substance: ALENDRONATE SODIUM\CHOLECALCIFEROL
     Indication: OSTEOPOROSIS
     Dosage: 70MG/2800 IU, UNKNOWN
     Route: 048
     Dates: start: 200605, end: 200710

REACTIONS (31)
  - Spinal operation [Unknown]
  - Sleep disorder [Unknown]
  - Neck surgery [Unknown]
  - Post procedural infection [Unknown]
  - Breast cyst excision [Unknown]
  - Dental prosthesis user [Unknown]
  - Endodontic procedure [Unknown]
  - Hypertension [Unknown]
  - Limb injury [Unknown]
  - Spinal operation [Unknown]
  - Arthritis [Unknown]
  - Pain in extremity [Unknown]
  - Hypoaesthesia [Unknown]
  - Breast conserving surgery [Unknown]
  - Back injury [Unknown]
  - Neuropathy peripheral [Unknown]
  - Fungal infection [Unknown]
  - Inappropriate schedule of drug administration [Unknown]
  - Intramedullary rod insertion [Not Recovered/Not Resolved]
  - Haematocrit abnormal [Unknown]
  - Surgery [Unknown]
  - Depression [Unknown]
  - Nervous system disorder [Unknown]
  - Femur fracture [Recovered/Resolved]
  - Anxiety [Unknown]
  - Dyspepsia [Unknown]
  - Infection [Unknown]
  - Pain [Unknown]
  - Hypoaesthesia [Unknown]
  - Sinusitis [Unknown]
  - Dermatitis contact [Unknown]

NARRATIVE: CASE EVENT DATE: 2002
